FAERS Safety Report 4980174-4 (Version None)
Quarter: 2006Q2

REPORT INFORMATION
  Report Type: 
  Country: None (occurrence: None)
  Receive Date: 20060424
  Receipt Date: 20060412
  Transmission Date: 20061013
  Serious: Yes (Other)
  Sender: FDA-Public Use
  Company Number: PHFR2006GB01441

PATIENT

DRUGS (1)
  1. TERBINAFINE HCL [Suspect]
     Indication: ONYCHOMYCOSIS
     Dosage: 250 MG, QD
     Route: 065

REACTIONS (4)
  - DIFFICULTY IN WALKING [None]
  - PAIN IN EXTREMITY [None]
  - PERIPHERAL MOTOR NEUROPATHY [None]
  - PERIPHERAL SENSORY NEUROPATHY [None]
